FAERS Safety Report 17912780 (Version 2)
Quarter: 2020Q2

REPORT INFORMATION
  Report Type: Spontaneous
  Country: US (occurrence: US)
  Receive Date: 20200618
  Receipt Date: 20200626
  Transmission Date: 20200714
  Serious: No
  Sender: FDA-Public Use
  Company Number: US-BEH-2020118420

PATIENT
  Age: 58 Year
  Sex: Male

DRUGS (18)
  1. OXCARBAZEPIN [Concomitant]
     Active Substance: OXCARBAZEPINE
  2. ASPIRIN [ACETYLSALICYLIC ACID] [Concomitant]
     Active Substance: ASPIRIN
  3. ZOLOFT [Concomitant]
     Active Substance: SERTRALINE HYDROCHLORIDE
  4. HIZENTRA [Suspect]
     Active Substance: HUMAN IMMUNOGLOBULIN G
     Dosage: 24 GRAM, QW
     Route: 058
     Dates: start: 20200121
  5. GABAPENTIN. [Concomitant]
     Active Substance: GABAPENTIN
  6. LORAZEPAM. [Concomitant]
     Active Substance: LORAZEPAM
  7. QUETIAPINE. [Concomitant]
     Active Substance: QUETIAPINE
  8. CLARITIN [CLARITHROMYCIN] [Concomitant]
     Active Substance: CLARITHROMYCIN
  9. FINASTERIDE. [Concomitant]
     Active Substance: FINASTERIDE
  10. PANTOPRAZOLE [Concomitant]
     Active Substance: PANTOPRAZOLE
  11. TAMSULOSIN [Concomitant]
     Active Substance: TAMSULOSIN
  12. KEPPRA [Concomitant]
     Active Substance: LEVETIRACETAM
  13. LEVOTHYROXINE. [Concomitant]
     Active Substance: LEVOTHYROXINE
  14. PREDNISONE. [Concomitant]
     Active Substance: PREDNISONE
  15. HIZENTRA [Suspect]
     Active Substance: HUMAN IMMUNOGLOBULIN G
     Dosage: UNK
     Route: 058
  16. HIZENTRA [Suspect]
     Active Substance: HUMAN IMMUNOGLOBULIN G
     Dosage: UNK
     Route: 058
  17. HIZENTRA [Suspect]
     Active Substance: HUMAN IMMUNOGLOBULIN G
     Indication: HYPOGAMMAGLOBULINAEMIA
     Dosage: 24 GRAM, QW
     Route: 058
     Dates: start: 20200120
  18. METOPROLOL TARTRATE. [Concomitant]
     Active Substance: METOPROLOL TARTRATE

REACTIONS (3)
  - Lymphadenopathy [Unknown]
  - Infusion site pain [Recovered/Resolved]
  - Swelling [Recovered/Resolved]

NARRATIVE: CASE EVENT DATE: 20200612
